FAERS Safety Report 23539827 (Version 6)
Quarter: 2024Q2

REPORT INFORMATION
  Report Type: Spontaneous
  Country: US (occurrence: US)
  Receive Date: 20240219
  Receipt Date: 20240626
  Transmission Date: 20240715
  Serious: Yes (Other)
  Sender: FDA-Public Use
  Company Number: US-BAYER-2024A023943

PATIENT
  Age: 37 Year
  Sex: Male

DRUGS (4)
  1. JIVI [Suspect]
     Active Substance: DAMOCTOCOG ALFA PEGOL
     Indication: Factor VIII deficiency
     Dosage: UNK UNK, Q72HR
     Route: 042
  2. KOVALTRY [Suspect]
     Active Substance: ANTIHEMOPHILIC FACTOR, HUMAN RECOMBINANT
     Indication: Prophylaxis
     Dosage: UNK, TIW
     Route: 042
  3. KOVALTRY [Suspect]
     Active Substance: ANTIHEMOPHILIC FACTOR, HUMAN RECOMBINANT
     Indication: Factor VIII deficiency
     Dosage: INTRAVENOUSLY  THREE TIMES A WEEK  FOR PROPHYLAXIS,  AND 3000 UNITS (+/- 10%) DAILY AS  NEEDED FOR B
  4. KOVALTRY [Suspect]
     Active Substance: ANTIHEMOPHILIC FACTOR, HUMAN RECOMBINANT
     Indication: Prophylaxis
     Dosage: UNK UNK, TIW
     Route: 042

REACTIONS (9)
  - Haemarthrosis [None]
  - Haemorrhage [Recovering/Resolving]
  - Haemorrhage [Recovered/Resolved]
  - Haemarthrosis [None]
  - Haemorrhage [None]
  - Haemarthrosis [None]
  - Groin pain [None]
  - Back pain [None]
  - Drug ineffective [None]
